FAERS Safety Report 6306485-8 (Version None)
Quarter: 2009Q3

REPORT INFORMATION
  Report Type: 
  Country: None (occurrence: None)
  Receive Date: 20090812
  Receipt Date: 20090806
  Transmission Date: 20100115
  Serious: Yes (Hospitalization)
  Sender: FDA-Public Use
  Company Number: BE-BRISTOL-MYERS SQUIBB COMPANY-14429393

PATIENT
  Age: 66 Year
  Sex: Female

DRUGS (2)
  1. CISPLATIN [Suspect]
     Indication: BREAST CANCER METASTATIC
     Dosage: RECENT INFUSION ON 17NOV08
     Route: 041
     Dates: start: 20080916
  2. CETUXIMAB [Suspect]
     Indication: BREAST CANCER METASTATIC
     Dosage: RECENT INFUSION ON 24NOV08
     Route: 041
     Dates: start: 20080916

REACTIONS (1)
  - PULMONARY EMBOLISM [None]
